FAERS Safety Report 5141944-5 (Version None)
Quarter: 2006Q4

REPORT INFORMATION
  Report Type: 
  Country: None (occurrence: None)
  Receive Date: 20061102
  Receipt Date: 20061016
  Transmission Date: 20070319
  Serious: Yes (Hospitalization, Other)
  Sender: FDA-Public Use
  Company Number: PHNU2006PL03473

PATIENT
  Age: 66 Year
  Sex: Female
  Weight: 70 kg

DRUGS (4)
  1. TRILEPTAL [Suspect]
     Indication: EPILEPSY
     Dosage: 1200 MG/D
     Route: 048
     Dates: start: 20060102, end: 20060911
  2. INDAPAMIDE [Concomitant]
  3. VEROSPIRON [Concomitant]
  4. PRESTARIUM [Concomitant]
     Dosage: 5 MG/D

REACTIONS (11)
  - BLOOD CHLORIDE DECREASED [None]
  - BLOOD POTASSIUM DECREASED [None]
  - BLOOD PRESSURE INCREASED [None]
  - BLOOD SODIUM DECREASED [None]
  - DYSPNOEA [None]
  - ELECTROLYTE IMBALANCE [None]
  - FATIGUE [None]
  - HEADACHE [None]
  - RESPIRATORY DISORDER [None]
  - VERTIGO [None]
  - VOMITING [None]
